FAERS Safety Report 8913039 (Version 3)
Quarter: 2013Q2

REPORT INFORMATION
  Report Type: Spontaneous
  Country: US (occurrence: None)
  Receive Date: 20121113
  Receipt Date: 20130610
  Transmission Date: 20140414
  Serious: Yes (Life-Threatening, Hospitalization, Other)
  Sender: FDA-Public Use
  Company Number: ADR-2012-02051

PATIENT
  Sex: Male

DRUGS (2)
  1. LIORESAL [Suspect]
     Indication: MUSCLE SPASTICITY
  2. VERSED [Concomitant]

REACTIONS (26)
  - Malignant melanoma [None]
  - Incorrect dose administered [None]
  - Hypersomnia [None]
  - Incorrect dose administered by device [None]
  - Apallic syndrome [None]
  - Sedation [None]
  - Anaesthetic complication [None]
  - Road traffic accident [None]
  - Blood pressure increased [None]
  - Autonomic dysreflexia [None]
  - Muscle spasticity [None]
  - Musculoskeletal stiffness [None]
  - Coma [None]
  - Miosis [None]
  - Hypotonia [None]
  - Urinary retention [None]
  - Nightmare [None]
  - Mental status changes [None]
  - Respiratory rate decreased [None]
  - Muscle rigidity [None]
  - Therapeutic response unexpected [None]
  - Tibia fracture [None]
  - Condition aggravated [None]
  - Device leakage [None]
  - Device breakage [None]
  - Injury [None]
